FAERS Safety Report 11747190 (Version 3)
Quarter: 2016Q1

REPORT INFORMATION
  Report Type: Spontaneous
  Country: US (occurrence: US)
  Receive Date: 20151117
  Receipt Date: 20160202
  Transmission Date: 20160525
  Serious: Yes (Other)
  Sender: FDA-Public Use
  Company Number: US-BAYER-2015-468061

PATIENT
  Age: 41 Year
  Sex: Female
  Weight: 61.68 kg

DRUGS (1)
  1. MIRENA [Suspect]
     Active Substance: LEVONORGESTREL
     Dosage: 20 MCG/24HR, CONT
     Route: 015
     Dates: start: 2010, end: 20151106

REACTIONS (3)
  - Device physical property issue [None]
  - Embedded device [Recovered/Resolved]
  - Device difficult to use [None]
